FAERS Safety Report 12131728 (Version 1)
Quarter: 2016Q1

REPORT INFORMATION
  Report Type: Spontaneous
  Country: US (occurrence: None)
  Receive Date: 20160229
  Receipt Date: 20160229
  Transmission Date: 20160526
  Serious: Yes (Hospitalization, Disabling)
  Sender: FDA-Public Use
  Company Number: None

PATIENT
  Age: 52 Year
  Sex: Male
  Weight: 97.98 kg

DRUGS (11)
  1. BRILINTA [Concomitant]
     Active Substance: TICAGRELOR
  2. OMEPRAZOLE. [Concomitant]
     Active Substance: OMEPRAZOLE
  3. VITAMIN D3 [Concomitant]
     Active Substance: CHOLECALCIFEROL
  4. CPAP MACHINE [Concomitant]
  5. MODAFINIL 200MG PAR PHARMACEUTICALS [Suspect]
     Active Substance: MODAFINIL
     Indication: SLEEP APNOEA SYNDROME
     Dosage: 1 PILL ONCE DAILY TAKEN BY MOUTH
     Route: 048
     Dates: start: 20160126, end: 20160210
  6. ATORVASTATIN [Concomitant]
     Active Substance: ATORVASTATIN
  7. COMPLETE MULTIVITAMIN [Concomitant]
     Active Substance: VITAMINS
  8. MODAFINIL 200MG PAR PHARMACEUTICALS [Suspect]
     Active Substance: MODAFINIL
     Indication: SOMNOLENCE
     Dosage: 1 PILL ONCE DAILY TAKEN BY MOUTH
     Route: 048
     Dates: start: 20160126, end: 20160210
  9. ASPIRIN. [Concomitant]
     Active Substance: ASPIRIN
  10. SERTRALINE [Concomitant]
     Active Substance: SERTRALINE HYDROCHLORIDE
  11. AFRINE [Concomitant]

REACTIONS (6)
  - Sedation [None]
  - Asthenia [None]
  - Chills [None]
  - Dizziness [None]
  - Muscular weakness [None]
  - Feeling abnormal [None]

NARRATIVE: CASE EVENT DATE: 20160204
